FAERS Safety Report 6239279-2 (Version None)
Quarter: 2009Q2

REPORT INFORMATION
  Report Type: 
  Country: None (occurrence: None)
  Receive Date: 20090618
  Receipt Date: 20090616
  Transmission Date: 20091009
  Serious: Yes (Hospitalization)
  Sender: FDA-Public Use
  Company Number: 2009SP013178

PATIENT
  Age: 40 Year
  Sex: Female

DRUGS (3)
  1. CELESTAMINE TAB [Suspect]
     Indication: FOOD ALLERGY
     Dosage: 2 DF;PO
     Route: 048
     Dates: start: 20090422, end: 20090501
  2. ALLEGRA [Concomitant]
  3. IPD [Concomitant]

REACTIONS (1)
  - HEPATITIS ACUTE [None]
